FAERS Safety Report 16489115 (Version 2)
Quarter: 2019Q3

REPORT INFORMATION
  Report Type: Report from Study
  Country: GB (occurrence: GB)
  Receive Date: 20190628
  Receipt Date: 20190730
  Transmission Date: 20191004
  Serious: Yes (Other)
  Sender: FDA-Public Use
  Company Number: GB-AUROBINDO-AUR-APL-2019-036191

PATIENT

DRUGS (4)
  1. OLANZAPINE. [Suspect]
     Active Substance: OLANZAPINE
     Indication: PSYCHOTIC DISORDER
     Dosage: 25 MILLIGRAM, DAILY
     Route: 065
  2. LITHIUM. [Suspect]
     Active Substance: LITHIUM
     Dosage: 400 MILLIGRAM,(400 MG, UNK)
     Route: 065
  3. LITHIUM. [Suspect]
     Active Substance: LITHIUM
     Indication: PSYCHOTIC DISORDER
     Dosage: 800 MILLIGRAM, DAILY
     Route: 065
  4. IMIPRAMINE [Suspect]
     Active Substance: IMIPRAMINE
     Indication: ANTIDEPRESSANT THERAPY
     Dosage: 100 MILLIGRAM, DAILY
     Route: 065

REACTIONS (7)
  - Cerebellar atrophy [Not Recovered/Not Resolved]
  - Reflexes abnormal [Not Recovered/Not Resolved]
  - Ataxia [Not Recovered/Not Resolved]
  - Nervous system disorder [Not Recovered/Not Resolved]
  - Myoclonus [Not Recovered/Not Resolved]
  - Nystagmus [Not Recovered/Not Resolved]
  - Tremor [Not Recovered/Not Resolved]
